FAERS Safety Report 21160002 (Version 11)
Quarter: 2023Q4

REPORT INFORMATION
  Report Type: Report from Study
  Country: US (occurrence: US)
  Receive Date: 20220802
  Receipt Date: 20231107
  Transmission Date: 20240110
  Serious: No
  Sender: FDA-Public Use
  Company Number: US-NOVARTISTESTPH-NVSC2022US174339

PATIENT
  Sex: Male

DRUGS (1)
  1. KESIMPTA [Suspect]
     Active Substance: OFATUMUMAB
     Indication: Multiple sclerosis
     Dosage: UNK
     Route: 065

REACTIONS (8)
  - Chills [Unknown]
  - Tremor [Unknown]
  - Pain [Unknown]
  - Upper limb fracture [Unknown]
  - Ligament rupture [Unknown]
  - Fall [Unknown]
  - Muscular weakness [Recovering/Resolving]
  - Product dose omission issue [Unknown]
